FAERS Safety Report 6742548-0 (Version None)
Quarter: 2010Q2

REPORT INFORMATION
  Report Type: 
  Country: None (occurrence: None)
  Receive Date: 20100524
  Receipt Date: 20100419
  Transmission Date: 20101027
  Serious: No
  Sender: FDA-Public Use
  Company Number: ACO_00719_2010

PATIENT
  Sex: Female

DRUGS (9)
  1. AMPYRA [Suspect]
     Indication: MULTIPLE SCLEROSIS
     Dosage: 10 MG BID ORAL
     Route: 048
     Dates: start: 20100413, end: 20100418
  2. COPAXONE [Concomitant]
  3. ZOLPIDEM [Concomitant]
  4. ALENDRONATE [Concomitant]
  5. OXYTROL [Concomitant]
  6. MULTI-VITAMIN [Concomitant]
  7. VITAMIN-C [Concomitant]
  8. CALCIUM CARBONATE [Concomitant]
  9. FISH OIL [Concomitant]

REACTIONS (1)
  - LARYNGITIS [None]
